FAERS Safety Report 5751384-3 (Version None)
Quarter: 2008Q2

REPORT INFORMATION
  Report Type: 
  Country: None (occurrence: None)
  Receive Date: 20080528
  Receipt Date: 20080519
  Transmission Date: 20081010
  Serious: Yes (Hospitalization)
  Sender: FDA-Public Use
  Company Number: FR-PFIZER INC-2008043452

PATIENT
  Sex: Female

DRUGS (11)
  1. ALDACTONE [Suspect]
     Indication: HYPERTENSION
     Route: 048
     Dates: start: 20080217, end: 20080415
  2. METFORMIN HCL [Interacting]
     Indication: DIABETES MELLITUS
     Route: 048
  3. IRBESARTAN [Interacting]
     Indication: HYPERTENSION
     Dosage: TEXT:1 DF
     Route: 048
  4. ATORVASTATIN CALCIUM [Concomitant]
     Dosage: DAILY DOSE:10MG
     Route: 048
  5. ESOMEPRAZOLE [Concomitant]
     Dosage: DAILY DOSE:40MG
     Route: 048
  6. CLOPIDOGREL [Concomitant]
     Dosage: DAILY DOSE:75MG
     Route: 048
  7. PROPRANOLOL [Concomitant]
     Dosage: DAILY DOSE:160MG
     Route: 048
  8. LEVOTHYROXINE SODIUM [Concomitant]
     Dosage: DAILY DOSE:100MCG
     Route: 048
  9. IRON SULFATETHIAMIN COMPOUND TAB [Concomitant]
     Route: 048
  10. INSULIN GLARGINE [Concomitant]
     Dosage: DAILY DOSE:30I.U.
     Route: 058
  11. INSULIN ASPART [Concomitant]
     Dosage: DAILY DOSE:86I.U.
     Route: 058

REACTIONS (5)
  - ACIDOSIS [None]
  - BLOOD CREATININE INCREASED [None]
  - BLOOD LACTIC ACID INCREASED [None]
  - DRUG INTERACTION [None]
  - HYPERKALAEMIA [None]
